FAERS Safety Report 9230317 (Version 2)
Quarter: 2013Q2

REPORT INFORMATION
  Report Type: Spontaneous
  Country: DE (occurrence: DE)
  Receive Date: 20130415
  Receipt Date: 20130527
  Transmission Date: 20140414
  Serious: Yes (Hospitalization)
  Sender: FDA-Public Use
  Company Number: PHHY2013DE035483

PATIENT
  Sex: Male
  Weight: 103 kg

DRUGS (3)
  1. CLOZAPINE [Suspect]
     Indication: SCHIZOPHRENIA
     Dosage: 25 MG, QD
     Route: 048
  2. CLOZAPINE [Suspect]
     Dosage: 200 MG, BID (0-0-2-2)
  3. CLOZAPINE [Suspect]
     Dosage: 100 MG, QD

REACTIONS (2)
  - Faecaloma [Recovered/Resolved]
  - Faecalith [Recovered/Resolved]
